FAERS Safety Report 8624305-3 (Version None)
Quarter: 2012Q3

REPORT INFORMATION
  Report Type: 
  Country: None (occurrence: None)
  Receive Date: 20120827
  Receipt Date: 20120816
  Transmission Date: 20120928
  Serious: Yes (Other)
  Sender: FDA-Public Use
  Company Number: US-ASTRAZENECA-2012SE59941

PATIENT
  Age: 67 Year
  Sex: Female

DRUGS (1)
  1. NEXIUM [Suspect]
     Route: 048

REACTIONS (4)
  - EROSIVE OESOPHAGITIS [None]
  - INTENTIONAL DRUG MISUSE [None]
  - AMNESIA [None]
  - INTRACRANIAL ANEURYSM [None]
